FAERS Safety Report 16082924 (Version 1)
Quarter: 2019Q1

REPORT INFORMATION
  Report Type: Report from Study
  Country: US (occurrence: US)
  Receive Date: 20190318
  Receipt Date: 20190318
  Transmission Date: 20190418
  Serious: Yes (Other)
  Sender: FDA-Public Use
  Company Number: US-ROCHE-2277825

PATIENT

DRUGS (4)
  1. CAPECITABINE. [Suspect]
     Active Substance: CAPECITABINE
     Indication: OESOPHAGEAL CARCINOMA
     Route: 065
  2. OXALIPLATIN. [Suspect]
     Active Substance: OXALIPLATIN
     Indication: OESOPHAGEAL CARCINOMA
     Route: 065
  3. EVEROLIMUS. [Suspect]
     Active Substance: EVEROLIMUS
     Indication: OESOPHAGEAL CARCINOMA
     Route: 065
  4. CARBOPLATIN. [Suspect]
     Active Substance: CARBOPLATIN
     Indication: OESOPHAGEAL CARCINOMA
     Route: 065

REACTIONS (33)
  - Oesophagitis [Unknown]
  - Non-cardiac chest pain [Unknown]
  - Sinusitis [Unknown]
  - Rhinitis allergic [Unknown]
  - Hypophosphataemia [Unknown]
  - Vomiting [Unknown]
  - Anaemia [Unknown]
  - Aspartate aminotransferase increased [Unknown]
  - Dehydration [Unknown]
  - Diarrhoea [Unknown]
  - Hypertension [Unknown]
  - Hypokalaemia [Unknown]
  - Lymphocyte count decreased [Unknown]
  - Nausea [Unknown]
  - Alanine aminotransferase increased [Unknown]
  - Decreased appetite [Unknown]
  - Fatigue [Unknown]
  - Otitis media [Unknown]
  - Neutrophil count decreased [Unknown]
  - Dysgeusia [Unknown]
  - Nasal congestion [Unknown]
  - Thrombocytopenia [Unknown]
  - White blood cell count decreased [Unknown]
  - Diverticulitis [Unknown]
  - Dysphagia [Unknown]
  - Eye infection [Unknown]
  - Headache [Unknown]
  - Hyperglycaemia [Unknown]
  - Hypertriglyceridaemia [Unknown]
  - Hypocalcaemia [Unknown]
  - Insomnia [Unknown]
  - Blood alkaline phosphatase increased [Unknown]
  - Leukopenia [Unknown]
